FAERS Safety Report 18528724 (Version 3)
Quarter: 2021Q1

REPORT INFORMATION
  Report Type: Report from Study
  Country: US (occurrence: US)
  Receive Date: 20201120
  Receipt Date: 20210323
  Transmission Date: 20210419
  Serious: Yes (Hospitalization)
  Sender: FDA-Public Use
  Company Number: NVSC2020US300025

PATIENT
  Sex: Male

DRUGS (1)
  1. KESIMPTA [Suspect]
     Active Substance: OFATUMUMAB
     Indication: PRODUCT USED FOR UNKNOWN INDICATION
     Dosage: UNK
     Route: 065
     Dates: start: 20201103, end: 20201105

REACTIONS (9)
  - Urinary tract infection [Recovering/Resolving]
  - Dysuria [Recovering/Resolving]
  - Oxygen saturation abnormal [Recovering/Resolving]
  - Muscle rigidity [Recovering/Resolving]
  - Blood pressure increased [Recovering/Resolving]
  - Chills [Recovering/Resolving]
  - Sepsis [Recovering/Resolving]
  - Body temperature increased [Recovering/Resolving]
  - Arthralgia [Recovering/Resolving]
